FAERS Safety Report 23801110 (Version 6)
Quarter: 2025Q1

REPORT INFORMATION
  Report Type: Spontaneous
  Country: US (occurrence: US)
  Receive Date: 20240430
  Receipt Date: 20250211
  Transmission Date: 20250409
  Serious: No
  Sender: BIOMARIN
  Company Number: US-BIOMARINAP-US-2024-156189

PATIENT

DRUGS (2)
  1. NAGLAZYME [Suspect]
     Active Substance: GALSULFASE
     Indication: Mucopolysaccharidosis VI
     Dosage: 100 MILLIGRAM, QW
     Route: 042
     Dates: start: 202304
  2. NAGLAZYME [Suspect]
     Active Substance: GALSULFASE
     Dosage: 100 MILLIGRAM, QW
     Route: 042
     Dates: start: 202303

REACTIONS (1)
  - Weight fluctuation [Not Recovered/Not Resolved]
